FAERS Safety Report 13946209 (Version 1)
Quarter: 2017Q3

REPORT INFORMATION
  Report Type: Spontaneous
  Country: AU (occurrence: AU)
  Receive Date: 20170907
  Receipt Date: 20170907
  Transmission Date: 20171128
  Serious: Yes (Death)
  Sender: FDA-Public Use
  Company Number: AU-CORDEN PHARMA LATINA S.P.A.-AU-2017COR000191

PATIENT

DRUGS (7)
  1. PREDNISOLONE. [Suspect]
     Active Substance: PREDNISOLONE
     Indication: LYMPHOMA
     Dosage: 50 MG DAILY, FOR 4 WEEKS,THEN ALTERNATE DAYS FOR 8 WEEKS
  2. DOXORUBICIN [Suspect]
     Active Substance: DOXORUBICIN
     Indication: LYMPHOMA
     Dosage: 35 MG/M2, ON DAY 1 EVERY SECOND WEEK
     Route: 042
  3. METHOTREXATE. [Suspect]
     Active Substance: METHOTREXATE
     Indication: LYMPHOMA
     Dosage: 50 MG/M2, ON DAY 8
  4. BLEOMYCIN [Suspect]
     Active Substance: BLEOMYCIN SULFATE
     Indication: LYMPHOMA
     Dosage: 10000 IU/M2, ON DAY 8
  5. VINCRISTINE [Suspect]
     Active Substance: VINCRISTINE
     Indication: LYMPHOMA
     Dosage: 1.4 MG/M2, ON DAY 8
  6. ETOPOSIDE. [Suspect]
     Active Substance: ETOPOSIDE
     Indication: LYMPHOMA
     Dosage: 150 MG/M2, ON DAY 1 EVERY SECOND WEEK
     Route: 042
  7. CYCLOPHOSPHAMIDE. [Suspect]
     Active Substance: CYCLOPHOSPHAMIDE
     Indication: LYMPHOMA
     Dosage: 300 MG/M2, ON DAY 1 EVERY SECOND WEEK
     Route: 042

REACTIONS (1)
  - Febrile neutropenia [Fatal]
